FAERS Safety Report 14204651 (Version 4)
Quarter: 2020Q2

REPORT INFORMATION
  Report Type: Spontaneous
  Country: US (occurrence: US)
  Receive Date: 20171120
  Receipt Date: 20200413
  Transmission Date: 20200713
  Serious: No
  Sender: FDA-Public Use
  Company Number: US-PFIZER INC-2017499358

PATIENT
  Age: 51 Year
  Sex: Male

DRUGS (2)
  1. LYRICA [Suspect]
     Active Substance: PREGABALIN
     Dosage: 3 DF, DAILY
  2. LYRICA [Suspect]
     Active Substance: PREGABALIN
     Dosage: 75 MG, 2X/DAY

REACTIONS (9)
  - Back pain [Unknown]
  - Nervousness [Unknown]
  - Gait disturbance [Unknown]
  - Intentional product use issue [Unknown]
  - Pain [Unknown]
  - Irritability [Unknown]
  - Anxiety [Unknown]
  - Insomnia [Unknown]
  - Memory impairment [Unknown]
